FAERS Safety Report 4953526-6 (Version None)
Quarter: 2006Q1

REPORT INFORMATION
  Report Type: 
  Country: None (occurrence: None)
  Receive Date: 20060324
  Receipt Date: 20060127
  Transmission Date: 20060701
  Serious: Yes (Other)
  Sender: FDA-Public Use
  Company Number: JP-ROCHE-435054

PATIENT
  Age: 66 Year
  Sex: Female

DRUGS (5)
  1. TAMIFLU [Suspect]
     Route: 048
     Dates: start: 20060124, end: 20060124
  2. BLOPRESS [Concomitant]
     Route: 048
     Dates: end: 20060124
  3. LIVALO [Concomitant]
     Route: 048
     Dates: end: 20060124
  4. ACETAMINOPHEN [Concomitant]
     Dosage: DOSE FORM: ORAL FORMULATION (NOT OTHERWISE SPECIFIED)
     Route: 048
  5. CONIEL [Concomitant]
     Route: 048
     Dates: end: 20060124

REACTIONS (7)
  - ABDOMINAL PAIN LOWER [None]
  - ANAEMIA [None]
  - DIARRHOEA [None]
  - FALL [None]
  - LOSS OF CONSCIOUSNESS [None]
  - MELAENA [None]
  - VOMITING [None]
